FAERS Safety Report 17924335 (Version 5)
Quarter: 2022Q1

REPORT INFORMATION
  Report Type: Report from Study
  Country: JP (occurrence: JP)
  Receive Date: 20200622
  Receipt Date: 20220204
  Transmission Date: 20220423
  Serious: No
  Sender: FDA-Public Use
  Company Number: JP-PFIZER INC-2020238309

PATIENT
  Age: 73 Year
  Sex: Female
  Weight: 44.7 kg

DRUGS (5)
  1. TAFAMIDIS MEGLUMINE [Suspect]
     Active Substance: TAFAMIDIS MEGLUMINE
     Indication: Cardiac amyloidosis
     Dosage: 80 MG, 1X/DAY
     Route: 048
     Dates: start: 20191105
  2. SPIRONOLACTONE [Suspect]
     Active Substance: SPIRONOLACTONE
     Dosage: 12.5 MG
     Route: 048
     Dates: start: 20170131
  3. AZOSEMIDE [Suspect]
     Active Substance: AZOSEMIDE
     Indication: Cardiac amyloidosis
     Dosage: 30 MG
     Route: 048
  4. OLMESARTAN MEDOXOMIL [Concomitant]
     Active Substance: OLMESARTAN MEDOXOMIL
     Indication: Cardiac amyloidosis
     Dosage: 10 MG, 1 TABLET
     Route: 048
     Dates: start: 20170522
  5. PRAVASTATIN SODIUM [Concomitant]
     Active Substance: PRAVASTATIN SODIUM
     Indication: Cardiac amyloidosis
     Dosage: 10 MG, 1 TABLET
     Route: 048
     Dates: start: 20150908

REACTIONS (1)
  - Atrial fibrillation [Not Recovered/Not Resolved]

NARRATIVE: CASE EVENT DATE: 20200518
